FAERS Safety Report 6826276-9 (Version None)
Quarter: 2010Q3

REPORT INFORMATION
  Report Type: 
  Country: None (occurrence: None)
  Receive Date: 20100709
  Receipt Date: 20100629
  Transmission Date: 20110219
  Serious: Yes (Other)
  Sender: FDA-Public Use
  Company Number: BR-PFIZER INC-2010081019

PATIENT
  Sex: Female
  Weight: 64 kg

DRUGS (5)
  1. FRONTAL [Suspect]
     Indication: SLEEP DISORDER
     Dosage: UNK
     Route: 048
     Dates: start: 20000101
  2. FRONTAL [Suspect]
     Dosage: UNK
     Route: 048
  3. RIVOTRIL [Suspect]
     Dosage: UNK
  4. HYGROTON [Concomitant]
     Indication: HYPERTENSION
     Dosage: UNK
  5. ENALAPRIL MALEATE [Concomitant]
     Indication: HYPERTENSION
     Dosage: 5 MG, UNK
     Dates: start: 20100201

REACTIONS (6)
  - AMNESIA [None]
  - BLOOD PRESSURE DECREASED [None]
  - HEAD INJURY [None]
  - HEADACHE [None]
  - POOR QUALITY SLEEP [None]
  - SYNCOPE [None]
